FAERS Safety Report 5323373-4 (Version None)
Quarter: 2007Q2

REPORT INFORMATION
  Report Type: 
  Country: None (occurrence: None)
  Receive Date: 20070514
  Receipt Date: 20070502
  Transmission Date: 20071010
  Serious: Yes (Hospitalization, Other)
  Sender: FDA-Public Use
  Company Number: PHRM2007FR01391

PATIENT
  Age: 84 Year
  Sex: Female

DRUGS (8)
  1. TEGRETOL [Suspect]
     Indication: EPILEPSY
     Dosage: 300 MG, QD
     Route: 048
     Dates: start: 20070307, end: 20070313
  2. VASTAREL [Concomitant]
     Dosage: 35 MG, BID
     Route: 048
  3. STABLON [Concomitant]
     Dosage: 12.5 MG, TID
     Route: 048
  4. ICAZ [Concomitant]
     Indication: ESSENTIAL HYPERTENSION
     Dosage: 2.5 MG, QD
     Route: 048
  5. LESCOL [Concomitant]
     Indication: LIPID METABOLISM DISORDER
     Dosage: 80 MG, QD
     Route: 048
  6. INIPOMP [Concomitant]
     Dosage: 40 MG, QD
     Route: 048
     Dates: start: 20070312
  7. ATENOLOL [Concomitant]
     Dosage: 50 MG, QD
     Route: 048
  8. KARDEGIC [Concomitant]
     Dosage: 75 MG, QD
     Route: 048
     Dates: start: 20070312

REACTIONS (6)
  - AORTIC VALVE INCOMPETENCE [None]
  - APHASIA [None]
  - CARDIAC HYPERTROPHY [None]
  - COGNITIVE DISORDER [None]
  - DIZZINESS [None]
  - HYPONATRAEMIA [None]
